FAERS Safety Report 15765899 (Version 1)
Quarter: 2018Q4

REPORT INFORMATION
  Report Type: Spontaneous
  Country: US (occurrence: US)
  Receive Date: 20181218
  Receipt Date: 20181218
  Transmission Date: 20190205
  Serious: No
  Sender: FDA-Public Use
  Company Number: None

PATIENT

DRUGS (2)
  1. ADRENALIN [Suspect]
     Active Substance: EPINEPHRINE
     Dosage: ROUTE: IM OR SQ?          OTHER FREQUENCY:MULTIPLE DOSE VIAL;?
  2. ADRENALIN [Suspect]
     Active Substance: EPINEPHRINE
     Dosage: ?          OTHER FREQUENCY:VIAL;OTHER ROUTE:NASAL?
     Route: 045

REACTIONS (1)
  - Product appearance confusion [None]

NARRATIVE: CASE EVENT DATE: 20180103
